FAERS Safety Report 8239631-X (Version None)
Quarter: 2012Q1

REPORT INFORMATION
  Report Type: 
  Country: None (occurrence: None)
  Receive Date: 20120328
  Receipt Date: 20120319
  Transmission Date: 20120608
  Serious: Yes (Death, Other)
  Sender: FDA-Public Use
  Company Number: JP-GENZYME-THYM-1002639

PATIENT
  Sex: Female
  Weight: 20 kg

DRUGS (18)
  1. ACYCLOVIR [Concomitant]
     Indication: INFECTION PROPHYLAXIS
     Dosage: UNK
     Dates: start: 20090901, end: 20100720
  2. THYMOGLOBULIN [Suspect]
     Indication: BONE MARROW CONDITIONING REGIMEN
     Dosage: 25 MG, QD
     Route: 042
     Dates: start: 20090824, end: 20090825
  3. FLUDARABINE PHOSPHATE [Concomitant]
     Indication: BONE MARROW CONDITIONING REGIMEN
     Dosage: UNK
     Dates: start: 20090820, end: 20090825
  4. MELPHALAN HYDROCHLORIDE [Concomitant]
     Indication: ANAEMIA
     Dosage: UNK
     Dates: start: 20090816, end: 20090816
  5. MELPHALAN HYDROCHLORIDE [Concomitant]
     Indication: BONE MARROW CONDITIONING REGIMEN
  6. METHOTREXATE [Concomitant]
     Indication: PROPHYLAXIS AGAINST GRAFT VERSUS HOST DISEASE
     Dosage: UNK
     Dates: start: 20090830, end: 20090830
  7. METHYLPREDNISOLONE SODIUM SUCCINATE [Concomitant]
     Indication: BONE MARROW CONDITIONING REGIMEN
     Dosage: UNK
     Dates: start: 20090828
  8. CYCLOPHOSPHAMIDE [Concomitant]
     Indication: BONE MARROW CONDITIONING REGIMEN
  9. METHOTREXATE [Concomitant]
     Indication: ANAEMIA
     Dosage: UNK
     Dates: start: 20090828, end: 20090828
  10. METHOTREXATE [Concomitant]
     Dosage: UNK
     Dates: start: 20090902, end: 20090902
  11. FLUDARABINE PHOSPHATE [Concomitant]
     Indication: ANAEMIA
  12. TACROLIMUS [Concomitant]
     Indication: BONE MARROW CONDITIONING REGIMEN
     Dosage: UNK
     Dates: start: 20090826
  13. MICAFUNGIN SODIUM [Concomitant]
     Indication: PROPHYLAXIS
     Dosage: UNK
     Route: 065
     Dates: start: 20090827, end: 20100118
  14. CYCLOPHOSPHAMIDE [Concomitant]
     Indication: ANAEMIA
     Dosage: UNK
     Dates: start: 20090823, end: 20090823
  15. TACROLIMUS [Concomitant]
     Indication: STEM CELL TRANSPLANT
  16. THYMOGLOBULIN [Suspect]
     Indication: ACUTE GRAFT VERSUS HOST DISEASE
     Dosage: 50 MG, QD
     Route: 042
     Dates: start: 20091024, end: 20091024
  17. CORTICOSTEROIDS [Concomitant]
     Indication: PROPHYLAXIS AGAINST GRAFT VERSUS HOST DISEASE
     Dosage: UNK
     Route: 065
     Dates: start: 20090828
  18. METHYLPREDNISOLONE SODIUM SUCCINATE [Concomitant]
     Indication: PROPHYLAXIS

REACTIONS (10)
  - GRAFT VERSUS HOST DISEASE IN LIVER [None]
  - LIVER DISORDER [None]
  - GRAFT VERSUS HOST DISEASE IN SKIN [None]
  - SEPSIS [None]
  - CYTOMEGALOVIRUS TEST POSITIVE [None]
  - EPSTEIN-BARR VIRUS TEST POSITIVE [None]
  - THROMBOTIC MICROANGIOPATHY [None]
  - DIARRHOEA [None]
  - RASH [None]
  - GRAFT VERSUS HOST DISEASE IN INTESTINE [None]
